FAERS Safety Report 5160870-9 (Version None)
Quarter: 2006Q4

REPORT INFORMATION
  Report Type: 
  Country: None (occurrence: None)
  Receive Date: 20061130
  Receipt Date: 20061114
  Transmission Date: 20070319
  Serious: Yes (Hospitalization)
  Sender: FDA-Public Use
  Company Number: 2006AP05417

PATIENT
  Age: 23128 Day
  Sex: Female

DRUGS (10)
  1. IRESSA [Suspect]
     Indication: NON-SMALL CELL LUNG CANCER STAGE IV
     Route: 048
     Dates: start: 20060106, end: 20060504
  2. IRESSA [Suspect]
     Indication: LUNG ADENOCARCINOMA
     Route: 048
     Dates: start: 20060106, end: 20060504
  3. IRESSA [Suspect]
     Route: 048
     Dates: start: 20060929
  4. IRESSA [Suspect]
     Route: 048
     Dates: start: 20060929
  5. GEMZAR [Concomitant]
     Indication: NON-SMALL CELL LUNG CANCER STAGE IV
     Dosage: 4 CYCLES GIVEN
     Dates: start: 20060515, end: 20060905
  6. CISPLATIN [Concomitant]
     Indication: NON-SMALL CELL LUNG CANCER STAGE IV
     Dosage: 4 CYCLES GIVEN
     Dates: start: 20060515, end: 20060905
  7. RADIOTHERAPY [Concomitant]
     Indication: BACK PAIN
     Dates: start: 20060928, end: 20061025
  8. INDERAL [Concomitant]
     Indication: ESSENTIAL TREMOR
     Dates: start: 20060901
  9. VITAMIN B AND C COMPLEX [Concomitant]
     Indication: DIZZINESS
     Dates: start: 20060901
  10. NEURONTIN [Concomitant]
     Indication: TREMOR
     Dates: start: 20060901

REACTIONS (2)
  - PYREXIA [None]
  - VERTIGO [None]
